FAERS Safety Report 11991009 (Version 1)
Quarter: 2016Q1

REPORT INFORMATION
  Report Type: Spontaneous
  Country: CN (occurrence: CN)
  Receive Date: 20160202
  Receipt Date: 20160202
  Transmission Date: 20160526
  Serious: Yes (Other)
  Sender: FDA-Public Use
  Company Number: CN-009507513-1602CHN000044

PATIENT
  Age: 23 Year
  Sex: Female
  Weight: 60 kg

DRUGS (2)
  1. AO LI TUO [Suspect]
     Active Substance: ORNIDAZOLE
     Indication: LUNG INFECTION
     Dosage: 0.5 G, BID
     Route: 041
     Dates: start: 20150809, end: 20150809
  2. TIENAM [Suspect]
     Active Substance: CILASTATIN SODIUM\IMIPENEM
     Indication: LUNG INFECTION
     Dosage: 1 G, TID
     Route: 041
     Dates: start: 20150809, end: 20150809

REACTIONS (5)
  - Blindness [Recovered/Resolved]
  - Muscle twitching [Recovered/Resolved]
  - Infusion related reaction [None]
  - Blindness transient [None]
  - Dizziness [Recovered/Resolved]

NARRATIVE: CASE EVENT DATE: 20150809
